FAERS Safety Report 17552858 (Version 1)
Quarter: 2020Q1

REPORT INFORMATION
  Report Type: Report from Study
  Country: US (occurrence: US)
  Receive Date: 20200318
  Receipt Date: 20200318
  Transmission Date: 20200409
  Serious: No
  Sender: FDA-Public Use
  Company Number: NVSC2020US077476

PATIENT
  Age: 59 Year
  Sex: Male
  Weight: 70.3 kg

DRUGS (3)
  1. LAMPRENE [Suspect]
     Active Substance: CLOFAZIMINE
     Dosage: 100 MG, QD
     Route: 048
     Dates: start: 20200302
  2. LAMPRENE [Suspect]
     Active Substance: CLOFAZIMINE
     Indication: TUBERCULOSIS
     Dosage: 100 MG, QD
     Route: 048
     Dates: start: 20190506
  3. CYCLOSERINE. [Concomitant]
     Active Substance: CYCLOSERINE
     Indication: PRODUCT USED FOR UNKNOWN INDICATION
     Route: 065

REACTIONS (2)
  - Skin discolouration [Not Recovered/Not Resolved]
  - Decreased appetite [Not Recovered/Not Resolved]

NARRATIVE: CASE EVENT DATE: 20200302
